FAERS Safety Report 20724081 (Version 1)
Quarter: 2022Q2

REPORT INFORMATION
  Report Type: Spontaneous
  Country: RU (occurrence: RU)
  Receive Date: 20220419
  Receipt Date: 20220419
  Transmission Date: 20220721
  Serious: Yes (Other)
  Sender: FDA-Public Use
  Company Number: RU-MLMSERVICE-2022040534814751

PATIENT
  Age: 57 Year
  Sex: Female

DRUGS (5)
  1. QUETIAPINE [Suspect]
     Active Substance: QUETIAPINE
     Indication: Bipolar disorder
  2. OLANZAPINE [Suspect]
     Active Substance: OLANZAPINE
     Indication: Bipolar disorder
  3. CARBAMAZEPINE [Suspect]
     Active Substance: CARBAMAZEPINE
     Indication: Bipolar disorder
     Dates: start: 2011
  4. OLANZAPINE [Suspect]
     Active Substance: OLANZAPINE
     Indication: Bipolar disorder
     Dates: start: 2018
  5. PHENAZEPAM [Concomitant]
     Active Substance: PHENAZEPAM
     Indication: Bipolar disorder
     Route: 042

REACTIONS (2)
  - Hyperprolactinaemia [Unknown]
  - Autoimmune thyroiditis [Unknown]
